FAERS Safety Report 4357118-1 (Version None)
Quarter: 2004Q2

REPORT INFORMATION
  Report Type: 
  Country: None (occurrence: None)
  Receive Date: 20040512
  Receipt Date: 20040316
  Transmission Date: 20050107
  Serious: Yes (Hospitalization, Disabling)
  Sender: FDA-Public Use
  Company Number: DE-MERCK-0403DEU00122

PATIENT
  Age: 42 Year
  Sex: Male
  Weight: 85 kg

DRUGS (2)
  1. ATORVASTATIN CALCIUM [Concomitant]
     Route: 048
     Dates: start: 20030317, end: 20030506
  2. ZETIA [Suspect]
     Indication: TYPE IIA HYPERLIPIDAEMIA
     Route: 048
     Dates: start: 20030317, end: 20030506

REACTIONS (3)
  - ANAL FISTULA [None]
  - INFLAMMATORY BOWEL DISEASE [None]
  - THERAPY NON-RESPONDER [None]
